FAERS Safety Report 5920250-2 (Version None)
Quarter: 2008Q4

REPORT INFORMATION
  Report Type: 
  Country: None (occurrence: None)
  Receive Date: 20081014
  Receipt Date: 20081002
  Transmission Date: 20090506
  Serious: Yes (Other)
  Sender: FDA-Public Use
  Company Number: 2008AL011004

PATIENT
  Sex: Female

DRUGS (1)
  1. PROMETHAZINE HCL [Suspect]
     Dosage: X1;
     Dates: start: 20081002

REACTIONS (1)
  - INTENTIONAL OVERDOSE [None]
